FAERS Safety Report 25517464 (Version 3)
Quarter: 2025Q3

REPORT INFORMATION
  Report Type: Report from Study
  Country: CA (occurrence: CA)
  Receive Date: 20250704
  Receipt Date: 20250813
  Transmission Date: 20251021
  Serious: Yes (Other)
  Sender: JOHNSON AND JOHNSON
  Company Number: CA-JNJFOC-20240231188

PATIENT
  Age: 43 Year
  Sex: Female

DRUGS (4)
  1. STELARA [Suspect]
     Active Substance: USTEKINUMAB
     Indication: Crohn^s disease
     Route: 058
  2. STELARA [Suspect]
     Active Substance: USTEKINUMAB
     Route: 058
     Dates: start: 20160615
  3. STELARA [Suspect]
     Active Substance: USTEKINUMAB
     Route: 058
     Dates: start: 20170615
  4. STELARA [Suspect]
     Active Substance: USTEKINUMAB
     Dosage: THERAPY START DATE REPORTED 14-MAY-2025?90.00 MG/ML
     Route: 058
     Dates: start: 20170615

REACTIONS (11)
  - Aneurysm [Unknown]
  - Shoulder operation [Unknown]
  - Road traffic accident [Unknown]
  - Cardiac arrest [Unknown]
  - Seizure [Recovered/Resolved]
  - Gastric ulcer [Unknown]
  - Heart rate decreased [Recovered/Resolved]
  - Device issue [Unknown]
  - Product leakage [Unknown]
  - Constipation [Unknown]
  - Visual impairment [Unknown]

NARRATIVE: CASE EVENT DATE: 20240101
